FAERS Safety Report 8384986 (Version 5)
Quarter: 2013Q3

REPORT INFORMATION
  Report Type: Report from Study
  Country: US (occurrence: US)
  Receive Date: 20120202
  Receipt Date: 20130916
  Transmission Date: 20140515
  Serious: Yes (Hospitalization)
  Sender: FDA-Public Use
  Company Number: US-ELI_LILLY_AND_COMPANY-US201110002114

PATIENT
  Age: 78 Year
  Sex: Female

DRUGS (10)
  1. TERIPARATIDE [Suspect]
     Indication: OSTEOPOROSIS
     Dosage: 20 UG, QD
     Dates: start: 201110
  2. TERIPARATIDE [Suspect]
     Dosage: 20 UG, QD
  3. TERIPARATIDE [Suspect]
     Dosage: 20 UG, QD
  4. TERIPARATIDE [Suspect]
     Dosage: 20 UG, QD
  5. TERIPARATIDE [Suspect]
     Dosage: UNK, QD
     Dates: end: 201308
  6. GABAPENTINE [Concomitant]
  7. PERCOCET [Concomitant]
  8. PRILOSEC [Concomitant]
  9. CALCIUM [Concomitant]
  10. VITAMIN D NOS [Concomitant]

REACTIONS (10)
  - Anaemia [Unknown]
  - Gastric haemorrhage [Unknown]
  - Impaired healing [Not Recovered/Not Resolved]
  - General physical health deterioration [Unknown]
  - Abdominal pain upper [Unknown]
  - Weight decreased [Unknown]
  - Injection site erythema [Unknown]
  - Vomiting [Unknown]
  - Drug dose omission [Unknown]
  - Malaise [Unknown]
